FAERS Safety Report 11154621 (Version 1)
Quarter: 2015Q2

REPORT INFORMATION
  Report Type: Spontaneous
  Country: US (occurrence: US)
  Receive Date: 20150602
  Receipt Date: 20150602
  Transmission Date: 20150821
  Serious: No
  Sender: FDA-Public Use
  Company Number: US-NOVEN PHARMACEUTICALS, INC.-US2015000094

PATIENT
  Age: 4 Year
  Sex: Male

DRUGS (2)
  1. DAYTRANA [Suspect]
     Active Substance: METHYLPHENIDATE
     Indication: AFFECTIVE DISORDER
     Dosage: 10 MG, UNK
     Route: 062
     Dates: start: 20150126
  2. DAYTRANA [Suspect]
     Active Substance: METHYLPHENIDATE
     Indication: SENSORY DISTURBANCE

REACTIONS (9)
  - Aggression [Unknown]
  - Affective disorder [Unknown]
  - Drug prescribing error [Unknown]
  - Wrong technique in drug usage process [Unknown]
  - Screaming [Unknown]
  - Crying [Unknown]
  - Glassy eyes [Unknown]
  - Disturbance in social behaviour [Unknown]
  - Erythema [Unknown]

NARRATIVE: CASE EVENT DATE: 2015
